FAERS Safety Report 4272775-6 (Version None)
Quarter: 2004Q1

REPORT INFORMATION
  Report Type: 
  Country: None (occurrence: None)
  Receive Date: 20040114
  Receipt Date: 20031224
  Transmission Date: 20041129
  Serious: Yes (Hospitalization)
  Sender: FDA-Public Use
  Company Number: USA031255388

PATIENT
  Age: 74 Year
  Sex: Female

DRUGS (4)
  1. FORTEO [Suspect]
     Indication: OSTEOPOROSIS
     Dates: start: 20030601, end: 20031221
  2. AVANZA (MIRTAZAPINE) [Concomitant]
  3. ACTONEL [Concomitant]
  4. CALCIUM [Concomitant]

REACTIONS (1)
  - VIRAL INFECTION [None]
